FAERS Safety Report 8237747-5 (Version None)
Quarter: 2012Q1

REPORT INFORMATION
  Report Type: 
  Country: None (occurrence: None)
  Receive Date: 20120309
  Receipt Date: 20101207
  Transmission Date: 20120608
  Serious: Yes (Other)
  Sender: FDA-Public Use
  Company Number: PHHY2010US65488

PATIENT
  Age: 36 Year
  Sex: Female
  Weight: 68.5 kg

DRUGS (6)
  1. EXTAVIA [Suspect]
     Indication: MULTIPLE SCLEROSIS
     Dosage: 0.125 MG, QOD, SUBCUTANEOUS
     Route: 058
     Dates: start: 20100818, end: 20101115
  2. AMANTADINE HCL [Concomitant]
  3. ZYRTEC [Concomitant]
  4. VITAMIN D (ERGOCALICIFEROL) [Concomitant]
  5. BIRTH CONTROL PILLS [Concomitant]
  6. MELOXICAM [Concomitant]

REACTIONS (12)
  - MULTIPLE SCLEROSIS [None]
  - TREMOR [None]
  - INJECTION SITE DISCOLOURATION [None]
  - FATIGUE [None]
  - INJECTION SITE ERYTHEMA [None]
  - FEELING HOT [None]
  - INJECTION SITE PAIN [None]
  - ARTHRALGIA [None]
  - ASTHENIA [None]
  - INJECTION SITE HAEMATOMA [None]
  - ABASIA [None]
  - HYPERHIDROSIS [None]
